FAERS Safety Report 18839775 (Version 1)
Quarter: 2021Q1

REPORT INFORMATION
  Report Type: Report from Study
  Country: US (occurrence: US)
  Receive Date: 20210204
  Receipt Date: 20210204
  Transmission Date: 20210419
  Serious: No
  Sender: FDA-Public Use
  Company Number: US-EXELIXIS-CABO-20035148

PATIENT
  Sex: Male

DRUGS (9)
  1. TADALAFIL. [Concomitant]
     Active Substance: TADALAFIL
  2. CABOMETYX [Suspect]
     Active Substance: CABOZANTINIB S-MALATE
     Indication: RENAL CANCER
     Dosage: 60 MG, QD
     Route: 048
     Dates: start: 20201029
  3. ASPIRIN. [Concomitant]
     Active Substance: ASPIRIN
  4. DEXAMETHASONE. [Concomitant]
     Active Substance: DEXAMETHASONE
  5. ZYRTEC [Concomitant]
     Active Substance: CETIRIZINE HYDROCHLORIDE
  6. PHAZYME [Concomitant]
     Active Substance: DIMETHICONE 410
  7. ADVIL [Concomitant]
     Active Substance: IBUPROFEN
  8. AMLODIPINE BESYLATE. [Concomitant]
     Active Substance: AMLODIPINE BESYLATE
  9. ELIQUIS [Concomitant]
     Active Substance: APIXABAN

REACTIONS (4)
  - Stomatitis [Unknown]
  - Drug intolerance [Unknown]
  - Visual impairment [Unknown]
  - Atrial fibrillation [Unknown]
